FAERS Safety Report 7235603-2 (Version None)
Quarter: 2011Q1

REPORT INFORMATION
  Report Type: 
  Country: None (occurrence: None)
  Receive Date: 20110120
  Receipt Date: 20110117
  Transmission Date: 20110831
  Serious: Yes (Death)
  Sender: FDA-Public Use
  Company Number: PHHY2011US03551

PATIENT
  Sex: Female

DRUGS (10)
  1. GABAPENTIN [Concomitant]
     Dosage: UNK
  2. LASIX [Concomitant]
     Dosage: 20 MG, UNK
  3. NOVOLOG [Concomitant]
  4. SYNTHROID [Concomitant]
  5. LISINOPRIL [Concomitant]
  6. EXJADE [Suspect]
     Dosage: 500 MG, UNK
     Route: 048
  7. ACETAMINOPHEN AND HYDROCODONE BITARTRATE [Concomitant]
  8. COREG [Concomitant]
     Dosage: 25 MG, UNK
  9. LANTUS [Concomitant]
  10. ALLOPURINOL [Concomitant]

REACTIONS (1)
  - DEATH [None]
